FAERS Safety Report 15018438 (Version 2)
Quarter: 2018Q3

REPORT INFORMATION
  Report Type: Report from Study
  Country: US (occurrence: US)
  Receive Date: 20180615
  Receipt Date: 20180718
  Transmission Date: 20181010
  Serious: Yes (Other)
  Sender: FDA-Public Use
  Company Number: US-UNITED THERAPEUTICS-UNT-2018-008743

PATIENT
  Sex: Female

DRUGS (2)
  1. UT?15C SR [Suspect]
     Active Substance: TREPROSTINIL DIOLAMINE
     Dosage: 0.125 MG, BID
     Route: 048
     Dates: end: 2018
  2. UT?15C SR [Suspect]
     Active Substance: TREPROSTINIL DIOLAMINE
     Indication: PULMONARY ARTERIAL HYPERTENSION
     Dosage: 0.25 MG, BID
     Route: 048
     Dates: start: 20180403, end: 2018

REACTIONS (4)
  - Headache [Not Recovered/Not Resolved]
  - Abdominal pain upper [Not Recovered/Not Resolved]
  - Atrial fibrillation [Unknown]
  - Feeling abnormal [Not Recovered/Not Resolved]

NARRATIVE: CASE EVENT DATE: 201804
